FAERS Safety Report 8803543 (Version 1)
Quarter: 2012Q4

REPORT INFORMATION
  Report Type: 
  Country: US (occurrence: US)
  Receive Date: 20120924
  Receipt Date: 20120924
  Transmission Date: 20130627
  Serious: No
  Sender: FDA-Public Use
  Company Number: US-TEVA-360444USA

PATIENT
  Age: 50 Year
  Sex: Female
  Weight: 64.47 kg

DRUGS (5)
  1. NUVIGIL [Suspect]
     Indication: SLEEP APNOEA SYNDROME
     Dosage: 400 Milligram Daily;
     Route: 048
     Dates: start: 201205
  2. MODAFINIL [Suspect]
     Indication: SLEEP APNOEA SYNDROME
     Dosage: 250 Milligram Daily;
     Route: 048
     Dates: start: 20120919
  3. BACLOFEN [Concomitant]
  4. LYRICA [Concomitant]
  5. PRISTIQ [Concomitant]

REACTIONS (2)
  - Migraine [Not Recovered/Not Resolved]
  - Dizziness [Recovered/Resolved]
